FAERS Safety Report 7582332-1 (Version None)
Quarter: 2011Q2

REPORT INFORMATION
  Report Type: 
  Country: None (occurrence: None)
  Receive Date: 20110527
  Receipt Date: 20101103
  Transmission Date: 20111010
  Serious: Yes (Hospitalization, Other)
  Sender: FDA-Public Use
  Company Number: US200906006005

PATIENT
  Age: 59 Year
  Sex: Male
  Weight: 142.9 kg

DRUGS (11)
  1. ATENOLOL [Concomitant]
  2. PREVACID [Concomitant]
  3. GLIMEPIRIDE [Concomitant]
  4. BYETTA [Suspect]
     Dosage: 5 U, 2/D,   10 U, 2/D, SUBCUTANEOUS
     Route: 058
     Dates: start: 20060522, end: 20080325
  5. BYETTA [Suspect]
     Dosage: 5 U, 2/D,   10 U, 2/D, SUBCUTANEOUS
     Route: 058
     Dates: start: 20080326, end: 20080901
  6. INDOMETHACIN [Concomitant]
  7. LISINOPRIL [Concomitant]
  8. EXENATIDE PEN, DISPOSABLE DEVICE (EXENATIDE PEN) PEN, DISPOSABLE [Concomitant]
  9. AVANDIA [Concomitant]
  10. PIOGLITAZONE HYDROCHLORIDE [Concomitant]
  11. CRESTOR [Concomitant]

REACTIONS (8)
  - RENAL CYST [None]
  - LIPASE INCREASED [None]
  - BILIARY DYSKINESIA [None]
  - BLOOD AMYLASE INCREASED [None]
  - PANCREATITIS ACUTE [None]
  - NEPHROLITHIASIS [None]
  - WEIGHT DECREASED [None]
  - RENAL FAILURE CHRONIC [None]
